FAERS Safety Report 10019210 (Version 1)
Quarter: 2014Q1

REPORT INFORMATION
  Report Type: Spontaneous
  Country: US (occurrence: None)
  Receive Date: 20140314
  Receipt Date: 20140314
  Transmission Date: 20141002
  Serious: Yes (Other)
  Sender: FDA-Public Use
  Company Number: None

PATIENT
  Age: 61 Year
  Sex: Female
  Weight: 60.33 kg

DRUGS (2)
  1. LAMOTRIGINE [Suspect]
     Indication: EPILEPSY
     Dosage: 1 PILL
     Route: 048
     Dates: start: 20140227, end: 20140313
  2. CARBATROL [Concomitant]

REACTIONS (4)
  - Product substitution issue [None]
  - Dizziness [None]
  - Abasia [None]
  - Impaired work ability [None]
